FAERS Safety Report 10726865 (Version 1)
Quarter: 2015Q1

REPORT INFORMATION
  Report Type: Spontaneous
  Country: FR (occurrence: FR)
  Receive Date: 20150121
  Receipt Date: 20150121
  Transmission Date: 20150721
  Serious: Yes (Hospitalization)
  Sender: FDA-Public Use
  Company Number: FR-009507513-1501FRA005575

PATIENT
  Age: 25 Year
  Sex: Female

DRUGS (4)
  1. PROVAMES [Suspect]
     Active Substance: ESTRADIOL
     Indication: OVULATION INDUCTION
     Dosage: FREQUENCY REPORTED AS 2 DF
     Route: 048
     Dates: start: 20141101, end: 20141101
  2. ORGALUTRAN [Suspect]
     Active Substance: GANIRELIX ACETATE
     Indication: OVULATION INDUCTION
     Dosage: UNK
     Dates: start: 20141105, end: 20141109
  3. OVITRELLE [Suspect]
     Active Substance: CHORIOGONADOTROPIN ALFA
     Indication: OVULATION INDUCTION
     Dosage: FREQUENCY REPORTED AS 1 DF
     Dates: start: 20141111, end: 20141111
  4. ELONVA [Suspect]
     Active Substance: CORIFOLLITROPIN ALFA
     Indication: OVULATION INDUCTION
     Dosage: FREQUENCY REPORTED AS 1 DF
     Dates: start: 20141101, end: 20141101

REACTIONS (5)
  - Ascites [Recovered/Resolved]
  - Ovarian hyperstimulation syndrome [Recovered/Resolved]
  - Dyspnoea [Recovered/Resolved]
  - Abdominal pain [Recovered/Resolved]
  - Hypoalbuminaemia [Recovered/Resolved]

NARRATIVE: CASE EVENT DATE: 20141117
